FAERS Safety Report 21449055 (Version 3)
Quarter: 2023Q4

REPORT INFORMATION
  Report Type: Report from Study
  Country: US (occurrence: US)
  Receive Date: 20221013
  Receipt Date: 20231010
  Transmission Date: 20240109
  Serious: Yes (Other)
  Sender: FDA-Public Use
  Company Number: US-ABBVIE-22K-163-4413073-00

PATIENT
  Sex: Female

DRUGS (4)
  1. HUMIRA [Suspect]
     Active Substance: ADALIMUMAB
     Indication: Hidradenitis
     Route: 058
  2. HUMIRA [Suspect]
     Active Substance: ADALIMUMAB
     Indication: Uveitis
  3. PFIZER-BIONTECH COVID-19 VACCINE [Concomitant]
     Active Substance: TOZINAMERAN
     Indication: COVID-19 immunisation
     Dosage: ONE IN ONCE FREQUENCY?SECOND DOSE
     Route: 030
     Dates: start: 20220211, end: 20220211
  4. PFIZER-BIONTECH COVID-19 VACCINE [Concomitant]
     Active Substance: TOZINAMERAN
     Indication: COVID-19 immunisation
     Dosage: ONE IN ONCE FREQUENCY?FIRST DOSE
     Route: 030
     Dates: start: 20211217, end: 20211217

REACTIONS (12)
  - Eye operation [Not Recovered/Not Resolved]
  - COVID-19 [Recovered/Resolved]
  - Wheezing [Unknown]
  - Respiratory disorder [Unknown]
  - Hand fracture [Recovered/Resolved]
  - Influenza like illness [Recovered/Resolved]
  - COVID-19 [Recovered/Resolved]
  - COVID-19 [Recovering/Resolving]
  - Back pain [Recovering/Resolving]
  - Fall [Unknown]
  - Device use error [Recovered/Resolved]
  - Malaise [Recovered/Resolved]

NARRATIVE: CASE EVENT DATE: 20210101
